FAERS Safety Report 5490611-7 (Version None)
Quarter: 2007Q4

REPORT INFORMATION
  Report Type: 
  Country: None (occurrence: None)
  Receive Date: 20071019
  Receipt Date: 20071005
  Transmission Date: 20080405
  Serious: Yes (Other)
  Sender: FDA-Public Use
  Company Number: US-ELI_LILLY_AND_COMPANY-US200710001746

PATIENT
  Sex: Female

DRUGS (2)
  1. EVISTA [Suspect]
     Indication: OSTEOPOROSIS
     Dosage: 60 MG, UNK
     Route: 048
     Dates: end: 20071003
  2. FORTEO [Suspect]
     Indication: OSTEOPOROSIS
     Dosage: 750 UNK, UNK
     Dates: start: 20071003

REACTIONS (2)
  - HEADACHE [None]
  - LOWER LIMB FRACTURE [None]
